FAERS Safety Report 20365158 (Version 1)
Quarter: 2022Q1

REPORT INFORMATION
  Report Type: Spontaneous
  Country: NL (occurrence: NL)
  Receive Date: 20220122
  Receipt Date: 20220122
  Transmission Date: 20220423
  Serious: Yes (Hospitalization, Other)
  Sender: FDA-Public Use
  Company Number: NL-AMNEAL PHARMACEUTICALS-2022-AMRX-00052

PATIENT
  Age: 42 Month
  Sex: Female
  Weight: 13 kg

DRUGS (2)
  1. ALBENZA [Suspect]
     Active Substance: ALBENDAZOLE
     Indication: Enterobiasis
     Dosage: 1D1/ 2T ONCE, 200 MG ONCE
     Route: 065
     Dates: start: 20211217
  2. ALBENZA [Suspect]
     Active Substance: ALBENDAZOLE
     Indication: Varicose vein

REACTIONS (2)
  - Kawasaki^s disease [Recovering/Resolving]
  - Off label use [Unknown]

NARRATIVE: CASE EVENT DATE: 20211217
